FAERS Safety Report 7427976-2 (Version None)
Quarter: 2011Q2

REPORT INFORMATION
  Report Type: 
  Country: None (occurrence: None)
  Receive Date: 20110421
  Receipt Date: 20110331
  Transmission Date: 20111010
  Serious: No
  Sender: FDA-Public Use
  Company Number: US-MYLANLABS-2011S1006921

PATIENT
  Age: 48 Year
  Sex: Male

DRUGS (4)
  1. DIDANOSINE [Suspect]
     Indication: HIV INFECTION
     Dates: start: 20110323
  2. NORVIR [Concomitant]
     Indication: HIV INFECTION
  3. VIREAD [Concomitant]
     Indication: HIV INFECTION
  4. REYATAZ [Concomitant]
     Indication: HIV INFECTION

REACTIONS (1)
  - NAUSEA [None]
